FAERS Safety Report 15786676 (Version 1)
Quarter: 2019Q1

REPORT INFORMATION
  Report Type: Spontaneous
  Country: US (occurrence: US)
  Receive Date: 20190103
  Receipt Date: 20190103
  Transmission Date: 20190417
  Serious: No
  Sender: FDA-Public Use
  Company Number: US-LEO PHARMA-316013

PATIENT
  Age: 41 Year
  Sex: Female

DRUGS (2)
  1. PICATO [Suspect]
     Active Substance: INGENOL MEBUTATE
     Indication: MALIGNANT MELANOMA
     Dosage: APPLIED TO FOREHEAD FOR MELANOMA
     Route: 061
     Dates: start: 20181229, end: 20181230
  2. PICATO [Suspect]
     Active Substance: INGENOL MEBUTATE
     Indication: SOLAR LENTIGO
     Dosage: APPLIED TO CHEST FOR SUN DAMAGE
     Route: 061
     Dates: start: 20181229, end: 20181230

REACTIONS (10)
  - Application site pain [Not Recovered/Not Resolved]
  - Application site vesicles [Not Recovered/Not Resolved]
  - Product use in unapproved indication [Unknown]
  - Application site acne [Not Recovered/Not Resolved]
  - Application site scab [Not Recovered/Not Resolved]
  - Application site erythema [Not Recovered/Not Resolved]
  - Application site exfoliation [Unknown]
  - Application site erythema [Not Recovered/Not Resolved]
  - Application site swelling [Not Recovered/Not Resolved]
  - Application site dryness [Unknown]

NARRATIVE: CASE EVENT DATE: 20181230
